FAERS Safety Report 5466242-1 (Version None)
Quarter: 2007Q3

REPORT INFORMATION
  Report Type: 
  Country: None (occurrence: None)
  Receive Date: 20070919
  Receipt Date: 20070907
  Transmission Date: 20080115
  Serious: Yes (Hospitalization, Other)
  Sender: FDA-Public Use
  Company Number: DSJ-2007-06248

PATIENT
  Age: 69 Year
  Sex: Male
  Weight: 81.4 kg

DRUGS (2)
  1. OLMESARTAN MEDOXOMIL [Suspect]
     Indication: ESSENTIAL HYPERTENSION
     Dosage: 20 MG (20 MG, 1 IN 1 D), PER ORAL
     Route: 048
     Dates: start: 20060927, end: 20070306
  2. NU-LOTAN (LOSARTAN POTASSIUM) (LOSARTAN POTASSIUM) [Concomitant]

REACTIONS (1)
  - NEPHROTIC SYNDROME [None]
